FAERS Safety Report 8475904-3 (Version None)
Quarter: 2012Q2

REPORT INFORMATION
  Report Type: 
  Country: None (occurrence: None)
  Receive Date: 20120628
  Receipt Date: 20120622
  Transmission Date: 20120825
  Serious: Yes (Death)
  Sender: FDA-Public Use
  Company Number: PL-PFIZER INC-2012150544

PATIENT
  Sex: Male

DRUGS (20)
  1. PANTOPRAZOLE [Concomitant]
  2. ALBUMIN ^NORDISK^ [Concomitant]
  3. SULFAMETHOXAZOLE AND TRIMETHOPRIM [Concomitant]
     Dosage: 960 MG, UNK
  4. GLUCOSE [Concomitant]
  5. PLAVIX [Concomitant]
     Dosage: 75 MG, UNK
  6. HEPARIN [Concomitant]
     Dosage: 12500 IU, UNK
  7. HALOPERIDOL [Concomitant]
  8. DORMICUM TABLET ^ROCHE^ [Concomitant]
  9. NYDRAZID [Concomitant]
  10. MEROPENEM [Concomitant]
     Dosage: 1G/50ML/H
  11. PYRALGIN [Concomitant]
  12. INSULIN [Concomitant]
  13. HCT ^ISIS^ [Concomitant]
     Dosage: 50 MG, UNK
  14. POLOCARD [Concomitant]
     Dosage: 75 MG, UNK
  15. DIBEN [Suspect]
  16. ECALTA [Suspect]
     Indication: FUNGAL INFECTION
     Dosage: 100 MG, CYCLIC, EVERY 14H
     Route: 042
     Dates: start: 20110804, end: 20110817
  17. VANCOMYCIN [Concomitant]
     Dosage: 0.5 G, UNK
  18. LAKCID [Concomitant]
  19. CORDARONE [Concomitant]
  20. VITAMIN B1 TAB [Concomitant]

REACTIONS (1)
  - MULTI-ORGAN FAILURE [None]
